FAERS Safety Report 8029372-6 (Version None)
Quarter: 2012Q1

REPORT INFORMATION
  Report Type: 
  Country: None (occurrence: None)
  Receive Date: 20120106
  Receipt Date: 20120104
  Transmission Date: 20120608
  Serious: Yes (Other)
  Sender: FDA-Public Use
  Company Number: BR-ROCHE-1027707

PATIENT
  Sex: Male
  Weight: 92 kg

DRUGS (4)
  1. MABTHERA [Suspect]
     Indication: RHEUMATOID ARTHRITIS
     Route: 042
     Dates: start: 20100301, end: 20110506
  2. DIOVAN [Concomitant]
  3. CALCIUM BICARBONATE [Concomitant]
  4. PREDNISOLONE [Concomitant]

REACTIONS (1)
  - ANGINA PECTORIS [None]
